FAERS Safety Report 10019239 (Version 2)
Quarter: 2014Q1

REPORT INFORMATION
  Report Type: Report from Study
  Country: NZ (occurrence: NZ)
  Receive Date: 20140318
  Receipt Date: 20140318
  Transmission Date: 20141002
  Serious: Yes (Hospitalization)
  Sender: FDA-Public Use
  Company Number: NZ-SA-200217216GDDC

PATIENT
  Age: 38 Year
  Sex: Female
  Weight: 73 kg

DRUGS (15)
  1. DOCETAXEL [Suspect]
     Indication: BREAST CANCER
     Route: 042
     Dates: start: 20020730, end: 20020730
  2. TRASTUZUMAB [Suspect]
     Indication: BREAST CANCER
     Route: 042
     Dates: start: 20020730, end: 20020730
  3. TRASTUZUMAB [Suspect]
     Indication: BREAST CANCER
     Route: 042
     Dates: start: 20020813, end: 20020813
  4. CARBOPLATIN [Suspect]
     Indication: BREAST CANCER
     Dosage: DOSE AS USED: AUC=6
     Route: 042
     Dates: start: 20020730, end: 20020730
  5. BENDROFLUAZIDE [Suspect]
     Route: 048
     Dates: start: 200104, end: 20020806
  6. BENDROFLUAZIDE [Suspect]
     Dates: start: 20020812
  7. ATENOLOL [Concomitant]
     Route: 048
     Dates: start: 200103
  8. DOMPERIDONE [Concomitant]
     Route: 048
     Dates: start: 20020730, end: 20020730
  9. DEXAMETHASONE [Concomitant]
     Route: 048
     Dates: start: 20020729, end: 20020731
  10. ONDANSETRON [Concomitant]
     Route: 048
     Dates: start: 20020730, end: 20020802
  11. LORAZEPAM [Concomitant]
     Route: 048
     Dates: start: 20020730, end: 20020730
  12. ZOPICLONE [Concomitant]
     Route: 048
     Dates: start: 200205
  13. CIPROFLOXACIN [Concomitant]
     Route: 048
     Dates: start: 20020803, end: 20020812
  14. NEUPOGEN [Concomitant]
     Route: 048
     Dates: start: 20020802, end: 20020808
  15. SLOW-K [Concomitant]
     Route: 048
     Dates: start: 20020807, end: 20020902

REACTIONS (3)
  - Hypokalaemia [Recovered/Resolved]
  - Hypomagnesaemia [Recovered/Resolved]
  - Cellulitis [Recovered/Resolved]
